FAERS Safety Report 22121992 (Version 1)
Quarter: 2023Q1

REPORT INFORMATION
  Report Type: Spontaneous
  Country: US (occurrence: US)
  Receive Date: 20230321
  Receipt Date: 20230321
  Transmission Date: 20230418
  Serious: Yes (Other)
  Sender: FDA-Public Use
  Company Number: US-TAKEDA-2023TUS029110

PATIENT
  Sex: Male

DRUGS (1)
  1. ENTYVIO [Suspect]
     Active Substance: VEDOLIZUMAB
     Indication: Colitis
     Dosage: UNK
     Route: 065

REACTIONS (5)
  - Progressive multifocal leukoencephalopathy [Unknown]
  - Feeling abnormal [Unknown]
  - Lethargy [Unknown]
  - Gait disturbance [Unknown]
  - Balance disorder [Unknown]
